FAERS Safety Report 8298363-2 (Version None)
Quarter: 2012Q2

REPORT INFORMATION
  Report Type: 
  Country: None (occurrence: None)
  Receive Date: 20120419
  Receipt Date: 20120413
  Transmission Date: 20120825
  Serious: Yes (Death, Hospitalization)
  Sender: FDA-Public Use
  Company Number: ES-ROCHE-1059799

PATIENT
  Age: 74 Year
  Sex: Male

DRUGS (1)
  1. XELODA [Suspect]
     Indication: GASTRIC CANCER
     Route: 065
     Dates: start: 20100919

REACTIONS (2)
  - GASTROINTESTINAL TOXICITY [None]
  - NEUTROPENIA [None]
